FAERS Safety Report 21258679 (Version 1)
Quarter: 2022Q3

REPORT INFORMATION
  Report Type: Spontaneous
  Country: CA (occurrence: CA)
  Receive Date: 20220826
  Receipt Date: 20220826
  Transmission Date: 20221027
  Serious: Yes (Hospitalization, Other)
  Sender: FDA-Public Use
  Company Number: CA-NOVARTISPH-NVSC2022CA187804

PATIENT
  Age: 78 Year
  Sex: Female

DRUGS (2)
  1. MYFORTIC [Suspect]
     Active Substance: MYCOPHENOLATE SODIUM
     Indication: Product used for unknown indication
     Dosage: 720 MG, BID
     Route: 065
     Dates: start: 201909, end: 202112
  2. MYFORTIC [Suspect]
     Active Substance: MYCOPHENOLATE SODIUM
     Dosage: 1080 MG, BID
     Route: 065
     Dates: start: 202112

REACTIONS (6)
  - Hyperkalaemia [Unknown]
  - Interstitial lung disease [Unknown]
  - Sjogren^s syndrome [Unknown]
  - Dyspnoea [Unknown]
  - Drug ineffective [Unknown]
  - Gait inability [Unknown]

NARRATIVE: CASE EVENT DATE: 20201201
